FAERS Safety Report 6003476-1 (Version None)
Quarter: 2008Q4

REPORT INFORMATION
  Report Type: 
  Country: None (occurrence: None)
  Receive Date: 20081216
  Receipt Date: 20081208
  Transmission Date: 20090506
  Serious: Yes (Other)
  Sender: FDA-Public Use
  Company Number: JP-BRISTOL-MYERS SQUIBB COMPANY-14430938

PATIENT
  Age: 56 Year
  Sex: Female

DRUGS (14)
  1. ERBITUX [Suspect]
     Indication: COLON CANCER
     Dosage: 1-INF:08OCT08 2-INF:16OCT 3-INF:22OCT 4-INF:29OCT 5-INF:05NOV 6-INF:12NOV 7-INF:19NOV
     Route: 041
     Dates: start: 20081008
  2. IRINOTECAN HYDROCHLORIDE [Concomitant]
     Indication: COLON CANCER
     Route: 041
     Dates: start: 20081022
  3. POLARAMINE [Concomitant]
     Indication: PREMEDICATION
     Route: 042
  4. DECADRON [Concomitant]
     Indication: PREMEDICATION
     Route: 042
  5. NOVAMIN [Concomitant]
     Dosage: FORMULATION: INJECTION; ALSO TAKEN AS TABLET 15MG FOR VOMITING PROPHYLAXIS.
     Dates: start: 20081024
  6. OXYCONTIN [Concomitant]
     Indication: CANCER PAIN
     Route: 048
     Dates: start: 20081008
  7. OXYNORM [Concomitant]
     Indication: CANCER PAIN
     Route: 048
     Dates: start: 20081111
  8. PROMAC [Concomitant]
     Indication: GASTRITIS PROPHYLAXIS
     Route: 048
  9. LENDORMIN [Concomitant]
     Indication: INSOMNIA
     Route: 048
  10. GASMOTIN [Concomitant]
     Indication: GASTRITIS
     Dosage: TABLET
     Route: 048
  11. MAGMITT [Concomitant]
     Indication: CONSTIPATION
     Route: 048
  12. LOBU [Concomitant]
     Indication: CANCER PAIN
     Route: 048
  13. LASIX [Concomitant]
     Indication: OEDEMA
     Route: 048
  14. ALDACTONE [Concomitant]
     Indication: OEDEMA
     Route: 048

REACTIONS (1)
  - HERPES ZOSTER [None]
